FAERS Safety Report 8321780-9 (Version None)
Quarter: 2012Q2

REPORT INFORMATION
  Report Type: 
  Country: None (occurrence: None)
  Receive Date: 20120430
  Receipt Date: 20120427
  Transmission Date: 20120825
  Serious: Yes (Life-Threatening, Hospitalization, Disabling)
  Sender: FDA-Public Use
  Company Number: IL-B.I. PHARMACEUTICALS,INC./RIDGEFIELD-2012-AP-00335RI

PATIENT
  Sex: Female

DRUGS (6)
  1. METFORMIN HCL [Concomitant]
     Indication: DIABETES MELLITUS
  2. PRADAXA [Suspect]
     Indication: PROPHYLAXIS
     Dosage: 300 MG
     Dates: start: 20110401, end: 20111115
  3. PRADAXA [Suspect]
     Indication: ATRIAL FIBRILLATION
  4. CAPOTEN [Concomitant]
     Indication: HYPERTENSION
  5. AMLODIPINE [Concomitant]
     Indication: HYPERTENSION
  6. EXFORGE [Concomitant]
     Indication: HYPERTENSION

REACTIONS (3)
  - EMBOLISM [None]
  - CEREBROVASCULAR ACCIDENT [None]
  - ANAEMIA [None]
